APPROVED DRUG PRODUCT: LETROZOLE
Active Ingredient: LETROZOLE
Strength: 2.5MG
Dosage Form/Route: TABLET;ORAL
Application: A091303 | Product #001
Applicant: APOTEX INC
Approved: Apr 19, 2012 | RLD: No | RS: No | Type: DISCN